FAERS Safety Report 8013946-2 (Version None)
Quarter: 2011Q4

REPORT INFORMATION
  Report Type: 
  Country: None (occurrence: None)
  Receive Date: 20111229
  Receipt Date: 20111222
  Transmission Date: 20120403
  Serious: Yes (Life-Threatening, Hospitalization)
  Sender: FDA-Public Use
  Company Number: JP-ASTRAZENECA-2011SE78306

PATIENT
  Age: 23953 Day
  Sex: Female
  Weight: 60 kg

DRUGS (4)
  1. ACETYLSALICYLIC ACID SRT [Concomitant]
  2. CANDESARTAN CILEXETIL [Suspect]
     Indication: PRODUCT USED FOR UNKNOWN INDICATION
     Route: 048
     Dates: start: 20111213, end: 20111220
  3. CANDESARTAN CILEXETIL [Suspect]
     Route: 048
     Dates: start: 20111221, end: 20111221
  4. NYSTATIN [Concomitant]

REACTIONS (7)
  - PARAESTHESIA [None]
  - MICTURITION URGENCY [None]
  - VISUAL IMPAIRMENT [None]
  - MALAISE [None]
  - SENSATION OF PRESSURE [None]
  - INSOMNIA [None]
  - FEAR OF DEATH [None]
